FAERS Safety Report 25170856 (Version 1)
Quarter: 2025Q2

REPORT INFORMATION
  Report Type: Spontaneous
  Country: US (occurrence: US)
  Receive Date: 20250408
  Receipt Date: 20250408
  Transmission Date: 20250717
  Serious: No
  Sender: SANOFI AVENTIS
  Company Number: US-SANOFI-02474177

PATIENT
  Sex: Female

DRUGS (2)
  1. DUPIXENT [Suspect]
     Active Substance: DUPILUMAB
     Indication: Neurodermatitis
     Dosage: UNK, QOW
     Route: 065
  2. DUPIXENT [Suspect]
     Active Substance: DUPILUMAB
     Dosage: UNK, QW
     Route: 065

REACTIONS (7)
  - Inflammation [Unknown]
  - Condition aggravated [Unknown]
  - Skin lesion [Unknown]
  - Pain [Unknown]
  - Discomfort [Unknown]
  - Skin burning sensation [Unknown]
  - Off label use [Unknown]
